FAERS Safety Report 14449337 (Version 1)
Quarter: 2018Q1

REPORT INFORMATION
  Report Type: Spontaneous
  Country: US (occurrence: US)
  Receive Date: 20180127
  Receipt Date: 20180127
  Transmission Date: 20180509
  Serious: Yes (Death)
  Sender: FDA-Public Use
  Company Number: US-ENDO PHARMACEUTICALS INC-2018-013974

PATIENT
  Age: 54 Year
  Sex: Female

DRUGS (1)
  1. PROPRANOLOL HYDROCHLORIDE TABLETS 80MG [Suspect]
     Active Substance: PROPRANOLOL HYDROCHLORIDE
     Indication: PRODUCT USED FOR UNKNOWN INDICATION
     Dosage: UNK UNK, UNKNOWN
     Route: 048

REACTIONS (3)
  - Poisoning [None]
  - Medication error [Fatal]
  - Exposure via ingestion [None]
